FAERS Safety Report 21584238 (Version 1)
Quarter: 2022Q4

REPORT INFORMATION
  Report Type: Spontaneous
  Country: FR (occurrence: FR)
  Receive Date: 20221111
  Receipt Date: 20221111
  Transmission Date: 20230113
  Serious: Yes (Hospitalization)
  Sender: FDA-Public Use
  Company Number: None

PATIENT
  Age: 82 Year
  Sex: Male
  Weight: 65 kg

DRUGS (13)
  1. LANSOPRAZOLE [Suspect]
     Active Substance: LANSOPRAZOLE
     Indication: Product used for unknown indication
     Dosage: UNIT DOSE : 15 MG, FREQUENCY TIME : 1 DAYS, THERAPY START DATE : ASKU
     Route: 065
     Dates: end: 20220928
  2. NICORANDIL [Suspect]
     Active Substance: NICORANDIL
     Indication: Myocardial ischaemia
     Dosage: UNIT DOSE : 20 MG, FREQUENCY TIME : 1 DAYS, THERAPY START DATE : ASKU
     Route: 065
     Dates: end: 20220928
  3. PINAVERIUM BROMIDE [Suspect]
     Active Substance: PINAVERIUM BROMIDE
     Indication: Gastrointestinal disorder
     Dosage: UNIT DOSE : 200 MG, FREQUENCY TIME : 1 DAYS, THERAPY START DATE : ASKU
     Route: 065
     Dates: end: 20220928
  4. DOXAZOSIN [Suspect]
     Active Substance: DOXAZOSIN MESYLATE
     Indication: Hypertension
     Dosage: UNIT DOSE : 4 MG, FREQUENCY TIME : 1 DAYS, THERAPY START DATE : ASKU
     Route: 065
     Dates: end: 20220928
  5. ATORVASTATIN [Suspect]
     Active Substance: ATORVASTATIN
     Indication: Cardiovascular event prophylaxis
     Dosage: UNIT DOSE : 80 MG, FREQUENCY TIME : 1 DAYS, DURATION : 8 MONTHS
     Route: 065
     Dates: start: 202201, end: 20220928
  6. PERINDOPRIL [Suspect]
     Active Substance: PERINDOPRIL
     Indication: Hypertension
     Dosage: UNIT DOSE : 4 MG, FREQUENCY TIME : 1 DAYS, THERAPY START DATE : ASKU
     Route: 065
     Dates: end: 20220928
  7. AMITRIPTYLINE [Suspect]
     Active Substance: AMITRIPTYLINE
     Indication: Product used for unknown indication
     Dosage: FORM STRENGTH : 40 MG/ML, UNIT DOSE : 30 GTT, FREQUENCY TIME : 1 DAYS, THERAPY START DATE : ASKU
     Route: 065
     Dates: end: 20220928
  8. ACETAMINOPHEN [Concomitant]
     Active Substance: ACETAMINOPHEN
     Indication: Product used for unknown indication
     Dosage: UNIT DOSE : 4 GRAM, FREQUENCY TIME : 1 DAYS, THERAPY START DATE : ASKU
     Route: 065
     Dates: end: 20220928
  9. EPLERENONE [Concomitant]
     Active Substance: EPLERENONE
     Indication: Product used for unknown indication
     Dosage: THERAPY START DATE AND END DATE : ASKU
     Route: 065
  10. KARDEGIC [Concomitant]
     Active Substance: ASPIRIN DL-LYSINE
     Indication: Product used for unknown indication
     Dosage: POWDER FOR ORAL SOLUTION IN SACHET-DOSE, FORM STRENGTH : 75 MG, UNIT DOSE : 75 MG, FREQUENCY TIME :
     Route: 065
     Dates: end: 20220928
  11. BISOPROLOL FUMARATE [Concomitant]
     Active Substance: BISOPROLOL FUMARATE
     Indication: Product used for unknown indication
     Dosage: UNIT DOSE : 5 MG, FREQUENCY TIME : 1 DAYS, THERAPY START DATE : ASKU
     Route: 065
  12. TICAGRELOR [Concomitant]
     Active Substance: TICAGRELOR
     Indication: Product used for unknown indication
     Dosage: UNIT DOSE : 180 MG, FREQUENCY TIME : 1 DAYS, THERAPY START DATE : ASKU
     Route: 065
     Dates: end: 20220928
  13. FUROSEMIDE [Concomitant]
     Active Substance: FUROSEMIDE
     Indication: Product used for unknown indication
     Dosage: UNIT DOSE : 20 MG, FREQUENCY TIME : 1 DAYS, THERAPY START DATE : ASKU
     Route: 065

REACTIONS (1)
  - Mixed liver injury [Recovering/Resolving]

NARRATIVE: CASE EVENT DATE: 20220401
